FAERS Safety Report 4347157-9 (Version None)
Quarter: 2004Q1

REPORT INFORMATION
  Report Type: 
  Country: None (occurrence: None)
  Receive Date: 20040329
  Receipt Date: 20040108
  Transmission Date: 20041129
  Serious: No
  Sender: FDA-Public Use
  Company Number: USA040156118

PATIENT
  Age: 5 Year
  Sex: Male
  Weight: 27 kg

DRUGS (2)
  1. STRATTERA [Suspect]
     Indication: ATTENTION DEFICIT/HYPERACTIVITY DISORDER
     Dosage: 50 MG/DAY
     Dates: start: 20031205
  2. SINGULAIR [Concomitant]

REACTIONS (5)
  - DISTURBANCE IN ATTENTION [None]
  - DRUG INEFFECTIVE [None]
  - DYSPHONIA [None]
  - NERVOUSNESS [None]
  - PRESCRIBED OVERDOSE [None]
